FAERS Safety Report 25676817 (Version 1)
Quarter: 2025Q3

REPORT INFORMATION
  Report Type: Spontaneous
  Country: JP (occurrence: JP)
  Receive Date: 20250813
  Receipt Date: 20250813
  Transmission Date: 20251020
  Serious: Yes (Death, Other)
  Sender: SANDOZ
  Company Number: JP-SUNPHARMACEUTICAL  INDUSTRIES LTD-2025RR-499564

PATIENT
  Age: 71 Year
  Sex: Male

DRUGS (8)
  1. AMPHOTERICIN B [Suspect]
     Active Substance: AMPHOTERICIN B
     Indication: Mucormycosis
     Dosage: 5 MG/KG, QD
     Route: 065
  2. AZACITIDINE [Suspect]
     Active Substance: AZACITIDINE
     Indication: Acute myeloid leukaemia
     Route: 065
  3. CRESEMBA [Suspect]
     Active Substance: ISAVUCONAZONIUM SULFATE
     Dosage: 200 MG, QD VIA IV DRIP ROUTE OF ADMIN (FREE TEXT): INTRAVENOUS DRIP
     Route: 041
  4. CRESEMBA [Suspect]
     Active Substance: ISAVUCONAZONIUM SULFATE
     Indication: Mucormycosis
     Dosage: 200 MG, TID INFUSION, AT A DOSE OF 200 MG EVERY 8 HOURS, VIAINTRAVENOUS (IV) DRIP, FOR SIX DOSES. RO
     Route: 041
     Dates: start: 20240710
  5. MICAFUNGIN [Suspect]
     Active Substance: MICAFUNGIN SODIUM
     Indication: Antifungal prophylaxis
     Dosage: 50 MG, QD
     Route: 065
  6. VENETOCLAX [Suspect]
     Active Substance: VENETOCLAX
     Indication: Acute myeloid leukaemia
     Route: 065
  7. VORICONAZOLE [Suspect]
     Active Substance: VORICONAZOLE
     Dosage: 200 MG, Q12H
     Route: 065
  8. VORICONAZOLE [Suspect]
     Active Substance: VORICONAZOLE
     Indication: Lung disorder
     Dosage: 300 MG, Q12H
     Route: 065

REACTIONS (3)
  - Pathogen resistance [Fatal]
  - Disseminated mucormycosis [Fatal]
  - Disease recurrence [Fatal]
